FAERS Safety Report 7932479-2 (Version None)
Quarter: 2011Q4

REPORT INFORMATION
  Report Type: 
  Country: None (occurrence: None)
  Receive Date: 20111122
  Receipt Date: 20111115
  Transmission Date: 20120403
  Serious: No
  Sender: FDA-Public Use
  Company Number: US-BIOGENIDEC-2010BI011715

PATIENT
  Sex: Female

DRUGS (2)
  1. TYSABRI [Suspect]
     Route: 042
     Dates: start: 20110707
  2. TYSABRI [Suspect]
     Indication: MULTIPLE SCLEROSIS
     Route: 042
     Dates: start: 20071030, end: 20100415

REACTIONS (14)
  - FUNGAL INFECTION [None]
  - IMMUNE SYSTEM DISORDER [None]
  - HEADACHE [None]
  - BLOOD IMMUNOGLOBULIN G DECREASED [None]
  - LIVER FUNCTION TEST ABNORMAL [None]
  - EAR INFECTION [None]
  - URINARY TRACT INFECTION [None]
  - TEMPERATURE INTOLERANCE [None]
  - BRONCHITIS [None]
  - GASTRIC DISORDER [None]
  - PHARYNGITIS STREPTOCOCCAL [None]
  - DIZZINESS [None]
  - RASH PRURITIC [None]
  - FEELING ABNORMAL [None]
